FAERS Safety Report 7221193-7 (Version None)
Quarter: 2011Q1

REPORT INFORMATION
  Report Type: 
  Country: None (occurrence: None)
  Receive Date: 20110112
  Receipt Date: 20110103
  Transmission Date: 20110831
  Serious: Yes (Hospitalization)
  Sender: FDA-Public Use
  Company Number: BR-ELI_LILLY_AND_COMPANY-BR201011003845

PATIENT
  Sex: Female
  Weight: 55 kg

DRUGS (2)
  1. DIMORF [Concomitant]
     Indication: PAIN
     Dosage: UNK, EVERY 6 HRS
     Route: 065
  2. FORTEO [Suspect]
     Indication: OSTEOPOROSIS
     Dosage: UNK, DAILY (1/D)
     Route: 065
     Dates: start: 20090801

REACTIONS (3)
  - PAIN [None]
  - NEPHROLITHIASIS [None]
  - BONE DENSITY DECREASED [None]
